FAERS Safety Report 19029491 (Version 1)
Quarter: 2021Q1

REPORT INFORMATION
  Report Type: Report from Study
  Country: US (occurrence: US)
  Receive Date: 20210319
  Receipt Date: 20210319
  Transmission Date: 20210420
  Serious: No
  Sender: FDA-Public Use
  Company Number: US-ACADIA PHARMACEUTICALS INC.-ACA-2021-PIM-000879

PATIENT
  Sex: Male

DRUGS (9)
  1. DUREZOL [Concomitant]
     Active Substance: DIFLUPREDNATE
     Dosage: 0.05%
  2. MEMANTINE. [Concomitant]
     Active Substance: MEMANTINE
     Dosage: 7 MILLIGRAM ER
  3. ROPINIROLE. [Concomitant]
     Active Substance: ROPINIROLE
  4. NUPLAZID [Suspect]
     Active Substance: PIMAVANSERIN TARTRATE
     Indication: PARKINSON^S DISEASE
     Dosage: 34 MILLIGRAM, QD
     Route: 048
     Dates: start: 20200701
  5. VITAMIN D [COLECALCIFEROL] [Concomitant]
     Active Substance: CHOLECALCIFEROL
     Dosage: 1000 UNITS
  6. AMLODIPINE [Concomitant]
     Active Substance: AMLODIPINE BESYLATE
     Dosage: 5 MILLIGRAM
  7. CARBIDOPA/LEVODOPA [Concomitant]
     Active Substance: CARBIDOPA\LEVODOPA
     Dosage: 25?100 MG
  8. NEO POLY DEX [Concomitant]
     Dosage: 0.1%
  9. CENTRUM VITAMINTS [Concomitant]

REACTIONS (1)
  - Oedema peripheral [Not Recovered/Not Resolved]
